FAERS Safety Report 9751030 (Version 1)
Quarter: 2013Q4

REPORT INFORMATION
  Report Type: Spontaneous
  Country: US (occurrence: US)
  Receive Date: 20131212
  Receipt Date: 20131212
  Transmission Date: 20140711
  Serious: Yes (Other)
  Sender: FDA-Public Use
  Company Number: US-TEVA-450039USA

PATIENT
  Sex: Male

DRUGS (2)
  1. METOCLOPRAMIDE [Suspect]
  2. REGLAN [Suspect]

REACTIONS (24)
  - Suicide attempt [Unknown]
  - Suicidal ideation [Unknown]
  - Muscle spasms [Unknown]
  - Back pain [Unknown]
  - Neck pain [Unknown]
  - Myalgia [Unknown]
  - Tension headache [Unknown]
  - Pain in jaw [Unknown]
  - Bruxism [Unknown]
  - Impaired work ability [Unknown]
  - Pain [Unknown]
  - Anxiety [Unknown]
  - Depression [Unknown]
  - Dysphagia [Unknown]
  - Dry mouth [Unknown]
  - Dyskinesia [Unknown]
  - Eye movement disorder [Unknown]
  - Eructation [Unknown]
  - Muscle spasms [Unknown]
  - Tremor [Unknown]
  - Muscle spasms [Unknown]
  - Grunting [Unknown]
  - Masked facies [Unknown]
  - Dyskinesia [Unknown]
